FAERS Safety Report 6509847-9 (Version None)
Quarter: 2009Q4

REPORT INFORMATION
  Report Type: 
  Country: None (occurrence: None)
  Receive Date: 20091222
  Receipt Date: 20091201
  Transmission Date: 20100525
  Serious: Yes (Other)
  Sender: FDA-Public Use
  Company Number: US-JNJFOC-20090807687

PATIENT
  Sex: Male
  Weight: 90.72 kg

DRUGS (3)
  1. LEVAQUIN [Suspect]
     Indication: BRONCHITIS
     Route: 048
     Dates: start: 20081112
  2. LEVAQUIN [Suspect]
     Indication: PNEUMONIA
     Route: 048
     Dates: start: 20081112
  3. ATIVAN [Concomitant]
     Route: 065

REACTIONS (13)
  - ARTHRALGIA [None]
  - ARTHROPATHY [None]
  - ASTHENIA [None]
  - BLISTER [None]
  - DRUG INEFFECTIVE [None]
  - GAIT DISTURBANCE [None]
  - IMMUNE SYSTEM DISORDER [None]
  - JOINT SWELLING [None]
  - LIGAMENT PAIN [None]
  - OEDEMA PERIPHERAL [None]
  - RASH [None]
  - SKIN LESION [None]
  - TENDONITIS [None]
